APPROVED DRUG PRODUCT: DOCETAXEL
Active Ingredient: DOCETAXEL
Strength: 160MG/8ML (20MG/ML)
Dosage Form/Route: INJECTABLE;INJECTION
Application: A210327 | Product #003 | TE Code: AP
Applicant: SHILPA MEDICARE LTD
Approved: May 16, 2019 | RLD: No | RS: No | Type: RX